FAERS Safety Report 24729924 (Version 3)
Quarter: 2025Q1

REPORT INFORMATION
  Report Type: Spontaneous
  Country: US (occurrence: US)
  Receive Date: 20241213
  Receipt Date: 20250107
  Transmission Date: 20250408
  Serious: No
  Sender: BRISTOL-MYERS SQUIBB COMPANY
  Company Number: US-BRISTOL-MYERS SQUIBB COMPANY-2024-193560

PATIENT
  Age: 65 Year
  Sex: Male

DRUGS (1)
  1. LENALIDOMIDE [Suspect]
     Active Substance: LENALIDOMIDE
     Indication: Pancytopenia
     Route: 048
     Dates: start: 20241202

REACTIONS (4)
  - Hiccups [Unknown]
  - Off label use [Unknown]
  - White blood cell count decreased [Recovering/Resolving]
  - Product dose omission issue [Unknown]

NARRATIVE: CASE EVENT DATE: 20241201
